FAERS Safety Report 18853191 (Version 1)
Quarter: 2021Q1

REPORT INFORMATION
  Report Type: Spontaneous
  Country: US (occurrence: US)
  Receive Date: 20210205
  Receipt Date: 20210205
  Transmission Date: 20210420
  Serious: No
  Sender: FDA-Public Use
  Company Number: US-PERRIGO-20US014155

PATIENT
  Age: 69 Year
  Sex: Female
  Weight: 49.89 kg

DRUGS (4)
  1. TRETINOIN. [Suspect]
     Active Substance: TRETINOIN
     Indication: ACNE
     Dosage: LESS THAN A PEA SIZE, 3 TIMES A WEEK
     Route: 061
     Dates: start: 202009, end: 20200928
  2. TRETINOIN. [Suspect]
     Active Substance: TRETINOIN
     Dosage: LESS THAN A PEA SIZE, ONCE A WEEK TIMES 3 WEEKS
     Route: 061
     Dates: start: 20200821, end: 202009
  3. TRETINOIN. [Suspect]
     Active Substance: TRETINOIN
     Dosage: UNKNOWN, UNKNOWN
     Route: 061
     Dates: start: 2000
  4. TRETINOIN. [Suspect]
     Active Substance: TRETINOIN
     Indication: SKIN WRINKLING
     Dosage: LESS THAN PEA SIZE, TWICE A WEEK
     Route: 061
     Dates: start: 202009, end: 202009

REACTIONS (3)
  - Application site pain [Not Recovered/Not Resolved]
  - Off label use [Recovered/Resolved]
  - Application site rash [Not Recovered/Not Resolved]

NARRATIVE: CASE EVENT DATE: 2000
